FAERS Safety Report 17034368 (Version 1)
Quarter: 2019Q4

REPORT INFORMATION
  Report Type: Spontaneous
  Country: DE (occurrence: DE)
  Receive Date: 20191115
  Receipt Date: 20191115
  Transmission Date: 20200122
  Serious: Yes (Other)
  Sender: FDA-Public Use
  Company Number: DE-US-PROVELL PHARMACEUTICALS LLC-E2B_90072223

PATIENT
  Sex: Female

DRUGS (4)
  1. EUTHYROX NF [Suspect]
     Active Substance: LEVOTHYROXINE SODIUM
     Indication: POST PROCEDURAL HYPOTHYROIDISM
     Dates: start: 20190918
  2. MAGNESIUM                          /00434501/ [Concomitant]
     Indication: PRODUCT USED FOR UNKNOWN INDICATION
  3. DELIX PLUS [Concomitant]
     Active Substance: HYDROCHLOROTHIAZIDE\RAMIPRIL
     Indication: BLOOD PRESSURE ABNORMAL
  4. DELIX PLUS [Concomitant]
     Active Substance: HYDROCHLOROTHIAZIDE\RAMIPRIL
     Indication: OEDEMA PERIPHERAL

REACTIONS (14)
  - Blister [Unknown]
  - Dry mouth [Unknown]
  - Diplopia [Unknown]
  - Chills [Unknown]
  - Dry skin [Unknown]
  - Hypoperfusion [Unknown]
  - Nocturia [Unknown]
  - Skin burning sensation [Not Recovered/Not Resolved]
  - Respiratory distress [Unknown]
  - Poor quality sleep [Unknown]
  - Myalgia [Unknown]
  - Hirsutism [Unknown]
  - Hyperhidrosis [Unknown]
  - Confusional state [Unknown]

NARRATIVE: CASE EVENT DATE: 2019
